FAERS Safety Report 16395190 (Version 1)
Quarter: 2019Q3

REPORT INFORMATION
  Report Type: Spontaneous
  Country: US (occurrence: US)
  Receive Date: 20190604
  Receipt Date: 20190604
  Transmission Date: 20191004
  Serious: Yes (Other)
  Sender: FDA-Public Use
  Company Number: None

PATIENT
  Age: 67 Year
  Sex: Female
  Weight: 81 kg

DRUGS (9)
  1. LOSARTAN 100MGS DAILY [Concomitant]
  2. NEOMYCIN AND POLYMYXIN B SULFATES AND HYDROCORTISONE [Suspect]
     Active Substance: HYDROCORTISONE\NEOMYCIN SULFATE\POLYMYXIN B SULFATE
     Indication: OTITIS EXTERNA
     Dosage: ?          QUANTITY:2 DROP(S);?
     Route: 001
     Dates: start: 20190509, end: 20190512
  3. LEXAPRO 10MGS DAILY [Concomitant]
  4. MELATONIN 10MGS DAILY [Concomitant]
  5. PREVACID 30MGS DAILY [Concomitant]
  6. MVI [Concomitant]
     Active Substance: VITAMINS
  7. HCTZ 25MGS DAILY [Concomitant]
  8. TRAZODONE 75MGS DAILY [Concomitant]
  9. SINEMET 25/100 2TABLETS 3X DAY [Concomitant]

REACTIONS (1)
  - Deafness neurosensory [None]

NARRATIVE: CASE EVENT DATE: 20190509
